FAERS Safety Report 9120165 (Version 1)
Quarter: 2013Q1

REPORT INFORMATION
  Report Type: Spontaneous
  Country: GB (occurrence: GB)
  Receive Date: 20130226
  Receipt Date: 20130226
  Transmission Date: 20140127
  Serious: Yes (Other)
  Sender: FDA-Public Use
  Company Number: GB-JNJFOC-20130208465

PATIENT
  Age: 10 Year
  Sex: Male
  Weight: 25.3 kg

DRUGS (1)
  1. CONCERTA XL [Suspect]
     Indication: ATTENTION DEFICIT/HYPERACTIVITY DISORDER
     Route: 048
     Dates: start: 20120515, end: 20120628

REACTIONS (1)
  - Haematuria [Recovered/Resolved]
